FAERS Safety Report 5611340-2 (Version None)
Quarter: 2008Q1

REPORT INFORMATION
  Report Type: 
  Country: None (occurrence: None)
  Receive Date: 20080201
  Receipt Date: 20080131
  Transmission Date: 20080703
  Serious: Yes (Hospitalization, Other)
  Sender: FDA-Public Use
  Company Number: IT-BRISTOL-MYERS SQUIBB COMPANY-13822887

PATIENT
  Age: 40 Year
  Sex: Female

DRUGS (2)
  1. IXABEPILONE [Suspect]
     Indication: BREAST CANCER
     Dosage: ALSO TAKEN ON 16-AUG-2007 DOSE: 45 (UNIT NOT SPECIFIED)
     Route: 042
     Dates: start: 20070613, end: 20070613
  2. BEVACIZUMAB [Suspect]
     Indication: BREAST CANCER
     Dosage: ALSO TAKEN ON 16-AUG-2007 DOSE: 750 (UNIT NOT SPECIFIED)
     Route: 042
     Dates: start: 20070613, end: 20070613

REACTIONS (4)
  - DYSPHONIA [None]
  - LEUKOPENIA [None]
  - NEUTROPENIA [None]
  - THROMBOCYTOPENIA [None]
